FAERS Safety Report 4842356-1 (Version None)
Quarter: 2005Q4

REPORT INFORMATION
  Report Type: 
  Country: None (occurrence: None)
  Receive Date: 20051125
  Receipt Date: 20051112
  Transmission Date: 20060501
  Serious: Yes (Hospitalization, Other)
  Sender: FDA-Public Use
  Company Number: 2005150470

PATIENT
  Sex: Male
  Weight: 68.0396 kg

DRUGS (4)
  1. DILANTIN [Suspect]
     Indication: CONVULSION
     Dates: start: 19850101
  2. PHENYTOIN [Suspect]
     Indication: CONVULSION
     Dates: start: 20051001
  3. VITAMINS (VITAMINS) [Concomitant]
  4. ACETAMINOPHEN [Concomitant]

REACTIONS (16)
  - BALANCE DISORDER [None]
  - CONDITION AGGRAVATED [None]
  - CONVULSION [None]
  - DIFFICULTY IN WALKING [None]
  - FALL [None]
  - GRAND MAL CONVULSION [None]
  - HEAD INJURY [None]
  - HYPOACUSIS [None]
  - IMPAIRED DRIVING ABILITY [None]
  - LUNG INJURY [None]
  - PETIT MAL EPILEPSY [None]
  - PNEUMONIA [None]
  - RIB FRACTURE [None]
  - SINUS DISORDER [None]
  - THERAPEUTIC RESPONSE UNEXPECTED WITH DRUG SUBSTITUTION [None]
  - VISUAL ACUITY REDUCED [None]
